FAERS Safety Report 19633942 (Version 1)
Quarter: 2021Q3

REPORT INFORMATION
  Report Type: Report from Study
  Country: None (occurrence: IT)
  Receive Date: 20210729
  Receipt Date: 20210729
  Transmission Date: 20211014
  Serious: Yes (Death, Hospitalization, Other)
  Sender: FDA-Public Use
  Company Number: IT-ABBVIE-21P-083-4000547-00

PATIENT
  Age: 69 Year
  Sex: Female

DRUGS (1)
  1. IBRUTINIB [Suspect]
     Active Substance: IBRUTINIB
     Indication: CENTRAL NERVOUS SYSTEM LYMPHOMA
     Route: 048
     Dates: start: 20201222, end: 20210119

REACTIONS (11)
  - Cytomegalovirus infection reactivation [Fatal]
  - COVID-19 [Fatal]
  - Sepsis [Fatal]
  - Contraindicated product administered [Unknown]
  - Aspergillus infection [Fatal]
  - Dysarthria [Fatal]
  - Hypotension [Fatal]
  - Central nervous system lymphoma [Fatal]
  - Enterococcal bacteraemia [Fatal]
  - Acquired immunodeficiency syndrome [Fatal]
  - Pneumonia [Fatal]

NARRATIVE: CASE EVENT DATE: 20210117
